FAERS Safety Report 14325976 (Version 1)
Quarter: 2017Q4

REPORT INFORMATION
  Report Type: Spontaneous
  Country: FR (occurrence: FR)
  Receive Date: 20171226
  Receipt Date: 20171226
  Transmission Date: 20180321
  Serious: Yes (Other)
  Sender: FDA-Public Use
  Company Number: FR-009507513-1711FRA009554

PATIENT
  Age: 71 Year
  Sex: Female
  Weight: 46 kg

DRUGS (4)
  1. TENORMIN [Suspect]
     Active Substance: ATENOLOL
     Dosage: 1 DF, QD
     Route: 048
     Dates: start: 201711
  2. ATENOLOL. [Concomitant]
     Active Substance: ATENOLOL
     Dosage: 1 DF, QAM
     Dates: start: 2010
  3. DIPROSTENE [Suspect]
     Active Substance: BETAMETHASONE DIPROPIONATE\BETAMETHASONE SODIUM PHOSPHATE
     Indication: SKIN MASS
     Dosage: UNK
     Route: 058
     Dates: start: 20171113, end: 20171113
  4. TENORMIN [Suspect]
     Active Substance: ATENOLOL
     Indication: HYPERTENSION
     Dosage: HALF TABLET PER DAY
     Route: 048
     Dates: start: 2010

REACTIONS (6)
  - Off label use [Unknown]
  - Palpitations [Unknown]
  - Nodule [Not Recovered/Not Resolved]
  - Headache [Recovered/Resolved]
  - Flushing [Recovered/Resolved]
  - Hypertension [Unknown]

NARRATIVE: CASE EVENT DATE: 20171113
